FAERS Safety Report 4749679-5 (Version None)
Quarter: 2005Q3

REPORT INFORMATION
  Report Type: 
  Country: None (occurrence: None)
  Receive Date: 20050818
  Receipt Date: 20050818
  Transmission Date: 20060218
  Serious: Yes (Disabling)
  Sender: FDA-Public Use
  Company Number: None

PATIENT
  Sex: Male

DRUGS (1)
  1. METHYLPHENIDATE HCL [Suspect]
     Indication: ATTENTION DEFICIT/HYPERACTIVITY DISORDER
     Dates: start: 19870101, end: 19960101

REACTIONS (15)
  - ABNORMAL BEHAVIOUR [None]
  - AGGRESSION [None]
  - ANGER [None]
  - ANXIETY [None]
  - BIPOLAR DISORDER [None]
  - DRUG ABUSER [None]
  - EDUCATIONAL PROBLEM [None]
  - FIGHT IN SCHOOL [None]
  - GROWTH RETARDATION [None]
  - IMPULSIVE BEHAVIOUR [None]
  - LEGAL PROBLEM [None]
  - MANIA [None]
  - NERVOUS SYSTEM DISORDER [None]
  - REFUSAL OF TREATMENT BY PATIENT [None]
  - SUICIDAL IDEATION [None]
